FAERS Safety Report 16053659 (Version 1)
Quarter: 2019Q1

REPORT INFORMATION
  Report Type: Spontaneous
  Country: US (occurrence: US)
  Receive Date: 20190308
  Receipt Date: 20190308
  Transmission Date: 20190418
  Serious: Yes (Other)
  Sender: FDA-Public Use
  Company Number: US-PURDUE-USA-2019-0146322

PATIENT
  Age: 85 Year
  Sex: Female
  Weight: 61.23 kg

DRUGS (2)
  1. HYDROCODONE BITARTRATE AND ACETAMINOPHEN [Suspect]
     Active Substance: ACETAMINOPHEN\HYDROCODONE BITARTRATE
     Indication: PAIN
     Dosage: (10/324 MG)1 TABLET, Q6H PRN
     Route: 048
     Dates: start: 201807
  2. LYRICA [Suspect]
     Active Substance: PREGABALIN
     Indication: NEURALGIA
     Dosage: 150 MG, BID
     Route: 048

REACTIONS (6)
  - Arthralgia [Unknown]
  - Rectal haemorrhage [Unknown]
  - Crying [Unknown]
  - Gait disturbance [Unknown]
  - Peripheral swelling [Unknown]
  - Screaming [Unknown]

NARRATIVE: CASE EVENT DATE: 20190108
